FAERS Safety Report 4896770-9 (Version None)
Quarter: 2006Q1

REPORT INFORMATION
  Report Type: 
  Country: None (occurrence: None)
  Receive Date: 20060126
  Receipt Date: 20060119
  Transmission Date: 20060701
  Serious: Yes (Disabling)
  Sender: FDA-Public Use
  Company Number: 2005145832

PATIENT
  Sex: Female

DRUGS (4)
  1. RELPAX [Suspect]
     Indication: MIGRAINE
     Dosage: 40 MG, ORAL
     Route: 048
  2. ALL OTHER THERAPEUTIC PRODUCTS (ALL OTHER THERAPEUTIC PRODUCTS) [Concomitant]
  3. MAXALT [Concomitant]
  4. IMIGRAN (SUMATRIPTAN SUCCINATE) [Concomitant]

REACTIONS (2)
  - PAIN IN EXTREMITY [None]
  - PARALYSIS [None]
